FAERS Safety Report 4935914-7 (Version None)
Quarter: 2006Q1

REPORT INFORMATION
  Report Type: 
  Country: None (occurrence: None)
  Receive Date: 20060302
  Receipt Date: 20060228
  Transmission Date: 20060701
  Serious: Yes (Death)
  Sender: FDA-Public Use
  Company Number: 2006BH003605

PATIENT
  Age: 72 Year
  Sex: Female

DRUGS (1)
  1. MORPHINE SULFATE [Suspect]
     Indication: ANALGESIC EFFECT
     Dosage: SEE IMAGE

REACTIONS (6)
  - AGITATION [None]
  - CARDIO-RESPIRATORY ARREST [None]
  - CONVULSION [None]
  - DEPRESSED LEVEL OF CONSCIOUSNESS [None]
  - HYPOXIC ENCEPHALOPATHY [None]
  - RESTLESSNESS [None]
